FAERS Safety Report 9099297 (Version 1)
Quarter: 2013Q1

REPORT INFORMATION
  Report Type: Spontaneous
  Country: None (occurrence: US)
  Receive Date: 20130214
  Receipt Date: 20130214
  Transmission Date: 20140127
  Serious: No
  Sender: FDA-Public Use
  Company Number: US-COVIDIEN/TYCO HEALTHCARE/MALLINCKRODT-T201300754

PATIENT
  Age: 78 None
  Sex: Female
  Weight: 43.99 kg

DRUGS (4)
  1. FENTANYL TRANSDERMAL SYSTEM [Suspect]
     Indication: BACK PAIN
     Dosage: 25 UG/HR, Q 72 HOURS
     Route: 062
     Dates: start: 201301
  2. FENTANYL TRANSDERMAL SYSTEM [Suspect]
     Dosage: 25 UG/HR, Q 72 HOURS
     Route: 062
     Dates: start: 201206, end: 201211
  3. GABAPENTIN [Concomitant]
     Indication: NEUROPATHY PERIPHERAL
     Dosage: 400 MG, 2 TABS AT BEDTIME
  4. FENTANYL [Concomitant]
     Dosage: UNK
     Dates: start: 201212, end: 201212

REACTIONS (4)
  - Pain [Recovered/Resolved]
  - Inappropriate schedule of drug administration [Unknown]
  - Application site erythema [Not Recovered/Not Resolved]
  - Application site pruritus [Not Recovered/Not Resolved]
